FAERS Safety Report 5500773-0 (Version None)
Quarter: 2007Q4

REPORT INFORMATION
  Report Type: 
  Country: None (occurrence: None)
  Receive Date: 20071029
  Receipt Date: 20071026
  Transmission Date: 20080405
  Serious: Yes (Other)
  Sender: FDA-Public Use
  Company Number: A0315303A

PATIENT
  Age: 45 Year
  Sex: Male
  Weight: 113.38 kg

DRUGS (4)
  1. PAXIL [Suspect]
     Dosage: 40MG PER DAY
     Route: 048
     Dates: start: 19960101
  2. NORTRIPTYLINE HCL [Concomitant]
     Dosage: 75MG PER DAY
     Dates: start: 19960101, end: 19980101
  3. DEMEROL [Concomitant]
  4. MORPHINE [Concomitant]

REACTIONS (16)
  - AGGRESSION [None]
  - AMNESIA [None]
  - BLOOD PRESSURE INCREASED [None]
  - CONSTIPATION [None]
  - DRUG WITHDRAWAL SYNDROME [None]
  - DYSKINESIA [None]
  - DYSURIA [None]
  - GAIT DISTURBANCE [None]
  - INSOMNIA [None]
  - LOSS OF PROPRIOCEPTION [None]
  - NERVE INJURY [None]
  - OVERDOSE [None]
  - PAIN IN EXTREMITY [None]
  - PARAESTHESIA [None]
  - PENIS DISORDER [None]
  - PHOTOPSIA [None]
